FAERS Safety Report 8520805-5 (Version None)
Quarter: 2012Q3

REPORT INFORMATION
  Report Type: 
  Country: None (occurrence: None)
  Receive Date: 20120719
  Receipt Date: 20120710
  Transmission Date: 20120928
  Serious: Yes (Other)
  Sender: FDA-Public Use
  Company Number: US-JNJFOC-20120704753

PATIENT
  Sex: Female
  Weight: 74.84 kg

DRUGS (2)
  1. LOVASTATIN [Concomitant]
     Indication: BLOOD CHOLESTEROL
     Dosage: STRENGTH 40 MG
     Route: 048
  2. REMICADE [Suspect]
     Indication: PSORIATIC ARTHROPATHY
     Route: 042
     Dates: start: 20101101, end: 20120501

REACTIONS (4)
  - RECTAL HAEMORRHAGE [None]
  - RECTAL CANCER STAGE III [None]
  - BLOOD PRESSURE INCREASED [None]
  - ARTHROPATHY [None]
